FAERS Safety Report 24060752 (Version 1)
Quarter: 2024Q3

REPORT INFORMATION
  Report Type: Spontaneous
  Country: DE (occurrence: DE)
  Receive Date: 20240708
  Receipt Date: 20240708
  Transmission Date: 20241016
  Serious: Yes (Other)
  Sender: PFIZER
  Company Number: DE-PFIZER INC-202400206010

PATIENT
  Age: 2 Month
  Sex: Female

DRUGS (1)
  1. RAPAMUNE [Suspect]
     Active Substance: SIROLIMUS
     Dosage: UNK
     Route: 048

REACTIONS (3)
  - Choking [Unknown]
  - Off label use [Unknown]
  - Wrong technique in product usage process [Unknown]
